FAERS Safety Report 15690413 (Version 1)
Quarter: 2018Q4

REPORT INFORMATION
  Report Type: Spontaneous
  Country: FR (occurrence: FR)
  Receive Date: 20181205
  Receipt Date: 20181205
  Transmission Date: 20190205
  Serious: Yes (Other)
  Sender: FDA-Public Use
  Company Number: FR-GRUNENTHAL-2017-14598

PATIENT
  Age: 51 Year
  Sex: Female
  Weight: 65 kg

DRUGS (4)
  1. ACETAMINOPHEN. [Concomitant]
     Active Substance: ACETAMINOPHEN
     Indication: PAIN
     Dosage: UNK
  2. CLAREAL [Concomitant]
     Active Substance: DESOGESTREL
     Indication: PRODUCT USED FOR UNKNOWN INDICATION
     Dosage: UNK
  3. QUTENZA [Suspect]
     Active Substance: CAPSAICIN
     Indication: ARTHRALGIA
     Dosage: 1 DF, UNK
     Route: 061
     Dates: start: 20160405, end: 20160405
  4. QUTENZA [Suspect]
     Active Substance: CAPSAICIN
     Indication: NEURALGIA
     Dosage: 1 DF, UNK
     Route: 061
     Dates: start: 20160310, end: 20160310

REACTIONS (8)
  - Application site pain [Recovered/Resolved]
  - Product administration error [Unknown]
  - Inappropriate schedule of product administration [Unknown]
  - Application site erythema [Recovered/Resolved]
  - Blister [Unknown]
  - Product storage error [Unknown]
  - Burns second degree [Recovered/Resolved]
  - Wrong technique in product usage process [Unknown]

NARRATIVE: CASE EVENT DATE: 20160310
